FAERS Safety Report 5594465-X (Version None)
Quarter: 2008Q1

REPORT INFORMATION
  Report Type: 
  Country: None (occurrence: None)
  Receive Date: 20080117
  Receipt Date: 20080110
  Transmission Date: 20080703
  Serious: Yes (Hospitalization)
  Sender: FDA-Public Use
  Company Number: US-JNJFOC-20080102920

PATIENT
  Sex: Female
  Weight: 89.81 kg

DRUGS (3)
  1. REMICADE [Suspect]
     Indication: RHEUMATOID ARTHRITIS
     Route: 042
  2. THYROID TAB [Concomitant]
     Indication: HYPOTHYROIDISM
  3. NEXIUM [Concomitant]
     Indication: GASTRIC ULCER
     Dosage: DURATION: 8 YEARS

REACTIONS (3)
  - ALOPECIA [None]
  - HOSPITALISATION [None]
  - THYROID FUNCTION TEST ABNORMAL [None]
